FAERS Safety Report 11030647 (Version 2)
Quarter: 2015Q2

REPORT INFORMATION
  Report Type: Spontaneous
  Country: JP (occurrence: None)
  Receive Date: 20150413
  Receipt Date: 20150514
  Transmission Date: 20150821
  Serious: Yes (Death)
  Sender: FDA-Public Use
  Company Number: PR 7433

PATIENT
  Age: 79 Year
  Sex: Female

DRUGS (3)
  1. PIRENOXINE [Concomitant]
     Active Substance: PIRENOXINE
  2. HYALURONATE SODIUM [Concomitant]
     Active Substance: HYALURONATE SODIUM
  3. ZIOPTAN [Suspect]
     Active Substance: TAFLUPROST
     Indication: NORMAL TENSION GLAUCOMA
     Dosage: 1 GTT, SINGLE, OU
     Dates: start: 20120823

REACTIONS (1)
  - Death [None]

NARRATIVE: CASE EVENT DATE: 201501
